FAERS Safety Report 9602572 (Version 1)
Quarter: 2013Q4

REPORT INFORMATION
  Report Type: Spontaneous
  Country: GB (occurrence: None)
  Receive Date: 20131003
  Receipt Date: 20131003
  Transmission Date: 20140711
  Serious: Yes (Hospitalization)
  Sender: FDA-Public Use
  Company Number: GB-2013-3228

PATIENT
  Age: 61 Year
  Sex: Female

DRUGS (2)
  1. VINORELBINE [Suspect]
     Indication: PULMONARY MASS
  2. CISPLATIN [Suspect]

REACTIONS (6)
  - Glomerular filtration rate decreased [None]
  - Hypokalaemia [None]
  - Hypomagnesaemia [None]
  - Diarrhoea [None]
  - Fatigue [None]
  - Nausea [None]
